FAERS Safety Report 6852352-0 (Version None)
Quarter: 2010Q3

REPORT INFORMATION
  Report Type: 
  Country: None (occurrence: None)
  Receive Date: 20100717
  Receipt Date: 20071112
  Transmission Date: 20110219
  Serious: No
  Sender: FDA-Public Use
  Company Number: US-PFIZER INC-2007096036

PATIENT
  Sex: Female
  Weight: 63.6 kg

DRUGS (3)
  1. CHANTIX [Suspect]
     Indication: SMOKING CESSATION THERAPY
     Route: 048
     Dates: start: 20071031
  2. EUGYNON [Concomitant]
  3. ZYRTEC [Concomitant]
     Dates: start: 20040101

REACTIONS (2)
  - AGITATION [None]
  - INSOMNIA [None]
